FAERS Safety Report 17920153 (Version 3)
Quarter: 2020Q3

REPORT INFORMATION
  Report Type: Other
  Country: US (occurrence: US)
  Receive Date: 20200620
  Receipt Date: 20200717
  Transmission Date: 20201103
  Serious: Yes (Hospitalization, Other)
  Sender: FDA-Public Use
  Company Number: US-ROCHE-2621847

PATIENT
  Age: 47 Year
  Sex: Female
  Weight: 60.5 kg

DRUGS (6)
  1. VITAMIN D3 [Concomitant]
     Active Substance: CHOLECALCIFEROL
     Indication: VITAMIN D DECREASED
  2. OCREVUS [Suspect]
     Active Substance: OCRELIZUMAB
     Indication: PRIMARY PROGRESSIVE MULTIPLE SCLEROSIS
     Dosage: 60 MG MIXED IN 500 CC NS?IV ACCORDING TO GENENTECH PROTOCOL
     Route: 042
     Dates: start: 201711
  3. BIOTIN [Concomitant]
     Active Substance: BIOTIN
  4. OXYBUTYNIN. [Concomitant]
     Active Substance: OXYBUTYNIN CHLORIDE
     Indication: HYPERTONIC BLADDER
  5. BACLOFEN. [Concomitant]
     Active Substance: BACLOFEN
     Dosage: INDICATION: MUSCLE RELAXER ELASTICITY OF LEG
  6. OXYBUTYNIN. [Concomitant]
     Active Substance: OXYBUTYNIN CHLORIDE
     Indication: BLADDER SPASM

REACTIONS (12)
  - Walking aid user [Not Recovered/Not Resolved]
  - Multiple sclerosis [Unknown]
  - Musculoskeletal stiffness [Unknown]
  - Hip fracture [Recovered/Resolved]
  - Balance disorder [Recovered/Resolved]
  - Gait spastic [Unknown]
  - Ataxia [Unknown]
  - Multiple sclerosis relapse [Recovered/Resolved]
  - Fall [Unknown]
  - Muscle spasms [Unknown]
  - Urinary tract infection [Unknown]
  - Muscular weakness [Unknown]

NARRATIVE: CASE EVENT DATE: 201809
